FAERS Safety Report 7759835-X (Version None)
Quarter: 2011Q3

REPORT INFORMATION
  Report Type: 
  Country: None (occurrence: None)
  Receive Date: 20110919
  Receipt Date: 20110914
  Transmission Date: 20111222
  Serious: Yes (Other)
  Sender: FDA-Public Use
  Company Number: US-AMGEN-USASP2011047389

PATIENT
  Sex: Female

DRUGS (3)
  1. BENADRYL [Concomitant]
     Indication: PROPHYLAXIS
  2. VECTIBIX [Suspect]
     Indication: COLON CANCER METASTATIC
     Route: 042
  3. DECADRON [Concomitant]
     Indication: PROPHYLAXIS

REACTIONS (2)
  - ADVERSE DRUG REACTION [None]
  - ERYTHEMA [None]
